FAERS Safety Report 9783338 (Version 1)
Quarter: 2013Q4

REPORT INFORMATION
  Report Type: Spontaneous
  Country: IT (occurrence: IT)
  Receive Date: 20131226
  Receipt Date: 20131226
  Transmission Date: 20140711
  Serious: Yes (Other)
  Sender: FDA-Public Use
  Company Number: IT-TEVA-451600ISR

PATIENT
  Age: 66 Year
  Sex: Male
  Weight: 79 kg

DRUGS (9)
  1. FLUOROURACILE TEVA [Suspect]
     Indication: COLON CANCER
     Dosage: 3923 MILLIGRAM DAILY;
     Route: 042
     Dates: start: 20130618, end: 20130703
  2. CAMPTO [Suspect]
     Indication: COLON CANCER
     Dosage: 157 MILLIGRAM DAILY; CONCENTRATE FOR SOLUTION FOR INFUSION
     Route: 042
     Dates: start: 20130618, end: 20130702
  3. ATROPINA SOLFATO [Concomitant]
     Indication: PROPHYLAXIS AGAINST DIARRHOEA
     Dosage: .25 MILLIGRAM DAILY;
     Route: 058
     Dates: start: 20130618, end: 20131003
  4. ATORVASTATINA  CALCIO TRIIDRATO [Concomitant]
     Indication: DYSLIPIDAEMIA
     Dosage: 10 MILLIGRAM DAILY;
     Route: 048
     Dates: start: 20130226, end: 20130808
  5. LEDERFOLIN [Concomitant]
     Indication: COLON CANCER
     Dosage: 490 MILLIGRAM DAILY;
     Route: 042
     Dates: start: 20130618, end: 20130702
  6. ERBITUX [Concomitant]
     Indication: COLON CANCER
     Dosage: 490 MILLIGRAM DAILY;
     Route: 042
     Dates: start: 20130619, end: 20131003
  7. CETIRIZINA TEVA ITALIA 10 MG [Concomitant]
     Indication: PREMEDICATION
     Dosage: 10 MILLIGRAM DAILY;
     Route: 048
     Dates: start: 20130618, end: 20131003
  8. ZOFRAN [Concomitant]
     Indication: PROPHYLAXIS OF NAUSEA AND VOMITING
     Dosage: 8 MILLIGRAM DAILY;
     Route: 042
     Dates: start: 20130618, end: 20131003
  9. DESAMETASONE FOSFATO HOSPIRA [Concomitant]
     Indication: PROPHYLAXIS OF NAUSEA AND VOMITING
     Dosage: 8 MILLIGRAM DAILY;
     Route: 042
     Dates: start: 20130618, end: 20131003

REACTIONS (4)
  - Abdominal pain [Recovered/Resolved]
  - Asthenia [Recovered/Resolved]
  - Diarrhoea [Recovered/Resolved]
  - Vomiting [Recovered/Resolved]
